FAERS Safety Report 14067737 (Version 2)
Quarter: 2017Q4

REPORT INFORMATION
  Report Type: Spontaneous
  Country: IT (occurrence: IT)
  Receive Date: 20171009
  Receipt Date: 20171015
  Transmission Date: 20180321
  Serious: Yes (Other)
  Sender: FDA-Public Use
  Company Number: IT-BIOGEN-2017BI00468660

PATIENT
  Age: 28 Year
  Sex: Female

DRUGS (5)
  1. XARENEL [Concomitant]
     Indication: VITAMIN D DEFICIENCY
     Route: 065
  2. TECFIDERA [Suspect]
     Active Substance: DIMETHYL FUMARATE
     Indication: RELAPSING-REMITTING MULTIPLE SCLEROSIS
     Route: 048
     Dates: start: 20170529
  3. NORMOCIS [Concomitant]
     Indication: NUTRITIONAL SUPPLEMENTATION
     Route: 048
  4. FLEXIBAN [Concomitant]
     Indication: MUSCLE SPASMS
     Route: 065
  5. FLUNAGEN [Concomitant]
     Indication: MIGRAINE
     Route: 065

REACTIONS (1)
  - Pityriasis rosea [Not Recovered/Not Resolved]

NARRATIVE: CASE EVENT DATE: 20170920
